FAERS Safety Report 12985805 (Version 4)
Quarter: 2017Q4

REPORT INFORMATION
  Report Type: Spontaneous
  Country: FR (occurrence: FR)
  Receive Date: 20161130
  Receipt Date: 20171124
  Transmission Date: 20180320
  Serious: Yes (Other)
  Sender: FDA-Public Use
  Company Number: FR-009507513-1611FRA011236

PATIENT
  Age: 57 Year
  Sex: Female
  Weight: 80 kg

DRUGS (12)
  1. COVERAM [Concomitant]
     Active Substance: AMLODIPINE\PERINDOPRIL
     Indication: HYPERTENSION
  2. VICTRELIS [Suspect]
     Active Substance: BOCEPREVIR
     Indication: CHRONIC HEPATITIS C
     Dosage: 800 MG, THREE TIMES A DAY
     Route: 048
     Dates: start: 20121026, end: 20130307
  3. INEXIUM (ESOMEPRAZOLE MAGNESIUM) [Concomitant]
     Active Substance: ESOMEPRAZOLE MAGNESIUM
     Dosage: 40 MG, QD
  4. BRILIQUE [Concomitant]
     Active Substance: TICAGRELOR
  5. COPEGUS [Suspect]
     Active Substance: RIBAVIRIN
     Indication: CHRONIC HEPATITIS C
     Dosage: 400 MG MORNING AND 800 MG EVENINIG
     Dates: start: 20120830, end: 20130307
  6. BISOPROLOL [Concomitant]
     Active Substance: BISOPROLOL
     Dosage: 2.5 MG, UNK
  7. ODRIK [Concomitant]
     Active Substance: TRANDOLAPRIL
     Dosage: 0.5 MG, QD
  8. PEGASYS [Suspect]
     Active Substance: PEGINTERFERON ALFA-2A
     Indication: CHRONIC HEPATITIS C
     Dosage: 180 MICROGRAM, WEEKLY
     Dates: start: 20120830, end: 20130307
  9. ASPEGIC [Concomitant]
     Active Substance: ASPIRIN DL-LYSINE
  10. LOVENOX [Concomitant]
     Active Substance: ENOXAPARIN SODIUM
  11. TAHOR [Concomitant]
     Active Substance: ATORVASTATIN CALCIUM
     Dosage: 40 MG, QD
  12. KARDEGIC [Concomitant]
     Active Substance: ASPIRIN DL-LYSINE
     Dosage: 75 MG, QD

REACTIONS (2)
  - Acute coronary syndrome [Recovered/Resolved with Sequelae]
  - Troponin increased [Unknown]

NARRATIVE: CASE EVENT DATE: 20141201
